FAERS Safety Report 22748838 (Version 2)
Quarter: 2023Q4

REPORT INFORMATION
  Report Type: Spontaneous
  Country: EC (occurrence: EC)
  Receive Date: 20230725
  Receipt Date: 20231101
  Transmission Date: 20240109
  Serious: Yes (Death, Hospitalization)
  Sender: FDA-Public Use
  Company Number: EC-PFIZER INC-PV202200014241

PATIENT
  Age: 69 Year
  Sex: Male

DRUGS (3)
  1. SUTENT [Suspect]
     Active Substance: SUNITINIB MALATE
     Dosage: 4X2 WEEKS
     Route: 048
     Dates: start: 202112
  2. SUTENT [Suspect]
     Active Substance: SUNITINIB MALATE
     Dosage: 2X1 WEEKS
     Route: 048
     Dates: start: 202206
  3. SUTENT [Suspect]
     Active Substance: SUNITINIB MALATE
     Dosage: 25 MG, CYCLIC (25 MG DAILY, SCHEME 4/2 REST)
     Route: 048
     Dates: start: 202208, end: 202305

REACTIONS (13)
  - Death [Fatal]
  - Second primary malignancy [Not Recovered/Not Resolved]
  - Bone cancer [Not Recovered/Not Resolved]
  - Diarrhoea [Not Recovered/Not Resolved]
  - Abdominal pain upper [Not Recovered/Not Resolved]
  - Flatulence [Recovered/Resolved]
  - Rash [Not Recovered/Not Resolved]
  - Taste disorder [Not Recovered/Not Resolved]
  - Decreased appetite [Not Recovered/Not Resolved]
  - Platelet count decreased [Not Recovered/Not Resolved]
  - Feeling abnormal [Unknown]
  - Pain [Not Recovered/Not Resolved]
  - Vomiting [Not Recovered/Not Resolved]

NARRATIVE: CASE EVENT DATE: 20220801
